FAERS Safety Report 19378074 (Version 2)
Quarter: 2021Q2

REPORT INFORMATION
  Report Type: Report from Study
  Country: MX (occurrence: MX)
  Receive Date: 20210605
  Receipt Date: 20210616
  Transmission Date: 20210717
  Serious: Yes (Other)
  Sender: FDA-Public Use
  Company Number: NVSC2021MX121800

PATIENT
  Sex: Female
  Weight: 102 kg

DRUGS (5)
  1. LOSARTAN. [Concomitant]
     Active Substance: LOSARTAN
     Dosage: 1 DF (5 MG), BID
     Route: 048
     Dates: start: 2018, end: 202102
  2. LEVOTIROXINA [Concomitant]
     Indication: THYROIDITIS
     Dosage: 1.5 UNK, QD (1.5 EVERY 24 HRS (15 DAYS AGO)
     Route: 048
  3. EXFORGE HCT [Suspect]
     Active Substance: AMLODIPINE BESYLATE\HYDROCHLOROTHIAZIDE\VALSARTAN
     Indication: HYPERTENSION
     Dosage: 5/160/12.5 MG, QD
     Route: 048
     Dates: start: 2019
  4. NIPRESOL [Concomitant]
     Indication: HYPERTENSION
     Dosage: 1 DF (100 MG), QD
     Route: 048
     Dates: start: 2019
  5. LOSARTAN. [Concomitant]
     Active Substance: LOSARTAN
     Indication: HYPERTENSION
     Dosage: 1 DF, QD (50 MG)
     Route: 048
     Dates: start: 2018

REACTIONS (6)
  - Diabetes mellitus [Not Recovered/Not Resolved]
  - Bone pain [Not Recovered/Not Resolved]
  - Weight increased [Not Recovered/Not Resolved]
  - Headache [Unknown]
  - Wrong technique in product usage process [Unknown]
  - Blood pressure increased [Unknown]

NARRATIVE: CASE EVENT DATE: 2019
